FAERS Safety Report 10232650 (Version 1)
Quarter: 2014Q2

REPORT INFORMATION
  Report Type: Spontaneous
  Country: FR (occurrence: FR)
  Receive Date: 20140612
  Receipt Date: 20140612
  Transmission Date: 20141212
  Serious: Yes (Hospitalization)
  Sender: FDA-Public Use
  Company Number: FR-PFIZER INC-2014153650

PATIENT
  Age: 13 Year
  Sex: Male

DRUGS (2)
  1. SALAZOPYRINE [Suspect]
     Indication: ANKYLOSING SPONDYLITIS
     Dosage: 500 MG, 3X/DAY
     Route: 048
     Dates: start: 201404, end: 20140521
  2. OXYCONTIN LP [Concomitant]
     Dosage: 55MG/ PER DAY
     Dates: start: 201403

REACTIONS (2)
  - Suicidal ideation [Not Recovered/Not Resolved]
  - Major depression [Not Recovered/Not Resolved]
